FAERS Safety Report 24985161 (Version 2)
Quarter: 2025Q2

REPORT INFORMATION
  Report Type: Spontaneous
  Country: US (occurrence: US)
  Receive Date: 20250219
  Receipt Date: 20250421
  Transmission Date: 20250717
  Serious: No
  Sender: ELI LILLY AND COMPANY
  Company Number: US-ELI_LILLY_AND_COMPANY-US202502013344

PATIENT
  Age: 59 Year
  Sex: Female

DRUGS (51)
  1. MOUNJARO [Suspect]
     Active Substance: TIRZEPATIDE
     Indication: Glycosylated haemoglobin increased
     Route: 058
     Dates: start: 20241231
  2. MOUNJARO [Suspect]
     Active Substance: TIRZEPATIDE
     Indication: Glycosylated haemoglobin increased
     Route: 058
     Dates: start: 20241231
  3. MOUNJARO [Suspect]
     Active Substance: TIRZEPATIDE
     Indication: Glycosylated haemoglobin increased
     Route: 058
     Dates: start: 20241231
  4. MOUNJARO [Suspect]
     Active Substance: TIRZEPATIDE
     Indication: Glycosylated haemoglobin increased
     Route: 058
     Dates: start: 20241231
  5. MOUNJARO [Suspect]
     Active Substance: TIRZEPATIDE
     Indication: Menopause
  6. MOUNJARO [Suspect]
     Active Substance: TIRZEPATIDE
     Indication: Menopause
  7. MOUNJARO [Suspect]
     Active Substance: TIRZEPATIDE
     Indication: Menopause
  8. MOUNJARO [Suspect]
     Active Substance: TIRZEPATIDE
     Indication: Menopause
  9. MOUNJARO [Suspect]
     Active Substance: TIRZEPATIDE
     Indication: Insulin resistance
  10. MOUNJARO [Suspect]
     Active Substance: TIRZEPATIDE
     Indication: Insulin resistance
  11. MOUNJARO [Suspect]
     Active Substance: TIRZEPATIDE
     Indication: Insulin resistance
  12. MOUNJARO [Suspect]
     Active Substance: TIRZEPATIDE
     Indication: Insulin resistance
  13. MOUNJARO [Suspect]
     Active Substance: TIRZEPATIDE
     Indication: Glycosylated haemoglobin increased
     Route: 058
  14. MOUNJARO [Suspect]
     Active Substance: TIRZEPATIDE
     Indication: Glycosylated haemoglobin increased
     Route: 058
  15. MOUNJARO [Suspect]
     Active Substance: TIRZEPATIDE
     Indication: Glycosylated haemoglobin increased
     Route: 058
  16. MOUNJARO [Suspect]
     Active Substance: TIRZEPATIDE
     Indication: Glycosylated haemoglobin increased
     Route: 058
  17. MOUNJARO [Suspect]
     Active Substance: TIRZEPATIDE
     Indication: Menopause
  18. MOUNJARO [Suspect]
     Active Substance: TIRZEPATIDE
     Indication: Menopause
  19. MOUNJARO [Suspect]
     Active Substance: TIRZEPATIDE
     Indication: Menopause
  20. MOUNJARO [Suspect]
     Active Substance: TIRZEPATIDE
     Indication: Menopause
  21. MOUNJARO [Suspect]
     Active Substance: TIRZEPATIDE
     Indication: Insulin resistance
  22. MOUNJARO [Suspect]
     Active Substance: TIRZEPATIDE
     Indication: Insulin resistance
  23. MOUNJARO [Suspect]
     Active Substance: TIRZEPATIDE
     Indication: Insulin resistance
  24. MOUNJARO [Suspect]
     Active Substance: TIRZEPATIDE
     Indication: Insulin resistance
  25. MOUNJARO [Suspect]
     Active Substance: TIRZEPATIDE
     Indication: Glycosylated haemoglobin increased
     Route: 058
  26. MOUNJARO [Suspect]
     Active Substance: TIRZEPATIDE
     Indication: Glycosylated haemoglobin increased
     Route: 058
  27. MOUNJARO [Suspect]
     Active Substance: TIRZEPATIDE
     Indication: Glycosylated haemoglobin increased
     Route: 058
  28. MOUNJARO [Suspect]
     Active Substance: TIRZEPATIDE
     Indication: Glycosylated haemoglobin increased
     Route: 058
  29. MOUNJARO [Suspect]
     Active Substance: TIRZEPATIDE
     Indication: Menopause
  30. MOUNJARO [Suspect]
     Active Substance: TIRZEPATIDE
     Indication: Menopause
  31. MOUNJARO [Suspect]
     Active Substance: TIRZEPATIDE
     Indication: Menopause
  32. MOUNJARO [Suspect]
     Active Substance: TIRZEPATIDE
     Indication: Menopause
  33. MOUNJARO [Suspect]
     Active Substance: TIRZEPATIDE
     Indication: Insulin resistance
  34. MOUNJARO [Suspect]
     Active Substance: TIRZEPATIDE
     Indication: Insulin resistance
  35. MOUNJARO [Suspect]
     Active Substance: TIRZEPATIDE
     Indication: Insulin resistance
  36. MOUNJARO [Suspect]
     Active Substance: TIRZEPATIDE
     Indication: Insulin resistance
  37. MOUNJARO [Suspect]
     Active Substance: TIRZEPATIDE
     Indication: Glycosylated haemoglobin increased
     Route: 058
  38. MOUNJARO [Suspect]
     Active Substance: TIRZEPATIDE
     Indication: Glycosylated haemoglobin increased
     Route: 058
  39. MOUNJARO [Suspect]
     Active Substance: TIRZEPATIDE
     Indication: Glycosylated haemoglobin increased
     Route: 058
  40. MOUNJARO [Suspect]
     Active Substance: TIRZEPATIDE
     Indication: Glycosylated haemoglobin increased
     Route: 058
  41. MOUNJARO [Suspect]
     Active Substance: TIRZEPATIDE
     Indication: Glycosylated haemoglobin increased
     Route: 058
  42. MOUNJARO [Suspect]
     Active Substance: TIRZEPATIDE
     Indication: Menopause
  43. MOUNJARO [Suspect]
     Active Substance: TIRZEPATIDE
     Indication: Menopause
  44. MOUNJARO [Suspect]
     Active Substance: TIRZEPATIDE
     Indication: Menopause
  45. MOUNJARO [Suspect]
     Active Substance: TIRZEPATIDE
     Indication: Menopause
  46. MOUNJARO [Suspect]
     Active Substance: TIRZEPATIDE
     Indication: Menopause
  47. MOUNJARO [Suspect]
     Active Substance: TIRZEPATIDE
     Indication: Insulin resistance
  48. MOUNJARO [Suspect]
     Active Substance: TIRZEPATIDE
     Indication: Insulin resistance
  49. MOUNJARO [Suspect]
     Active Substance: TIRZEPATIDE
     Indication: Insulin resistance
  50. MOUNJARO [Suspect]
     Active Substance: TIRZEPATIDE
     Indication: Insulin resistance
  51. MOUNJARO [Suspect]
     Active Substance: TIRZEPATIDE
     Indication: Insulin resistance

REACTIONS (4)
  - Incorrect dose administered [Unknown]
  - Off label use [Unknown]
  - Injection site erythema [Unknown]
  - Injection site pruritus [Unknown]

NARRATIVE: CASE EVENT DATE: 20250215
